FAERS Safety Report 5151140-3 (Version None)
Quarter: 2006Q4

REPORT INFORMATION
  Report Type: 
  Country: None (occurrence: None)
  Receive Date: 20061114
  Receipt Date: 20061114
  Transmission Date: 20070319
  Serious: Yes (Hospitalization, Other)
  Sender: FDA-Public Use
  Company Number: None

PATIENT
  Sex: Female
  Weight: 54.4316 kg

DRUGS (6)
  1. AMITRIPTYLINE HCL [Suspect]
     Indication: MIGRAINE
     Dosage: 1 TABLET AT BEDTIME PO
     Route: 048
     Dates: start: 20060807, end: 20060810
  2. COGENTIN [Concomitant]
  3. . [Concomitant]
  4. . [Concomitant]
  5. . [Concomitant]
  6. NERVE BLOCKER INJECTIONS [Concomitant]

REACTIONS (3)
  - DYSKINESIA [None]
  - GAIT DISTURBANCE [None]
  - MUSCLE SPASMS [None]
